FAERS Safety Report 7988705-7 (Version None)
Quarter: 2011Q4

REPORT INFORMATION
  Report Type: 
  Country: None (occurrence: None)
  Receive Date: 20111218
  Receipt Date: 20111206
  Transmission Date: 20120403
  Serious: Yes (Hospitalization, Other)
  Sender: FDA-Public Use
  Company Number: US-ELI_LILLY_AND_COMPANY-US201110007281

PATIENT
  Age: 15 Year
  Sex: Female
  Weight: 69.8 kg

DRUGS (2)
  1. CYMBALTA [Suspect]
     Indication: DEPRESSION
     Dosage: 60 MG, QD
     Route: 048
     Dates: start: 20110801, end: 20111001
  2. OMEPRAZOLE [Concomitant]

REACTIONS (3)
  - APPENDICITIS [None]
  - OFF LABEL USE [None]
  - URINARY RETENTION [None]
